FAERS Safety Report 9159670 (Version 1)
Quarter: 2013Q1

REPORT INFORMATION
  Report Type: Spontaneous
  Country: BR (occurrence: BR)
  Receive Date: 20130313
  Receipt Date: 20130313
  Transmission Date: 20140127
  Serious: Yes (Other)
  Sender: FDA-Public Use
  Company Number: BR-ASTRAZENECA-2013SE15327

PATIENT
  Age: 80 Year
  Sex: Female

DRUGS (2)
  1. ATACAND HCT [Suspect]
     Indication: BLOOD PRESSURE INCREASED
     Dosage: 8/12.5 MG
     Route: 048
     Dates: start: 201209, end: 20121110
  2. ATACAND HCT [Suspect]
     Indication: BLOOD PRESSURE INCREASED
     Dosage: 16/12.5 MG
     Route: 048

REACTIONS (2)
  - Drug ineffective [Unknown]
  - Hypertension [Recovered/Resolved]
